FAERS Safety Report 4879343-3 (Version None)
Quarter: 2006Q1

REPORT INFORMATION
  Report Type: 
  Country: None (occurrence: None)
  Receive Date: 20060112
  Receipt Date: 20051003
  Transmission Date: 20060701
  Serious: Yes (Hospitalization)
  Sender: FDA-Public Use
  Company Number: US-MERCK-0510USA02574

PATIENT
  Age: 47 Year
  Sex: Female
  Weight: 123 kg

DRUGS (2)
  1. VIOXX [Suspect]
     Indication: ARTHRITIS
     Route: 048
     Dates: end: 20030101
  2. VIOXX [Suspect]
     Indication: MIGRAINE
     Route: 048
     Dates: end: 20030101

REACTIONS (4)
  - CHEST PAIN [None]
  - DEPRESSION [None]
  - EMOTIONAL DISORDER [None]
  - MYOCARDIAL INFARCTION [None]
